FAERS Safety Report 5091789-X (Version None)
Quarter: 2006Q3

REPORT INFORMATION
  Report Type: 
  Country: None (occurrence: None)
  Receive Date: 20060829
  Receipt Date: 20060526
  Transmission Date: 20061208
  Serious: Yes (Hospitalization)
  Sender: FDA-Public Use
  Company Number: US-BRISTOL-MYERS SQUIBB COMPANY-13392170

PATIENT
  Age: 63 Year
  Sex: Male

DRUGS (1)
  1. ERBITUX [Suspect]
     Dosage: INITIATED ON 13-MAR-2005.
     Route: 042
     Dates: start: 20060405, end: 20060405

REACTIONS (2)
  - ASTHENIA [None]
  - BLOOD MAGNESIUM DECREASED [None]
